FAERS Safety Report 8280143-5 (Version None)
Quarter: 2012Q2

REPORT INFORMATION
  Report Type: 
  Country: None (occurrence: None)
  Receive Date: 20120412
  Receipt Date: 20120409
  Transmission Date: 20120825
  Serious: Yes (Hospitalization)
  Sender: FDA-Public Use
  Company Number: US-GILEAD-2012-0053495

PATIENT
  Age: 64 Year
  Sex: Male

DRUGS (3)
  1. COUMADIN [Concomitant]
     Indication: PULMONARY HYPERTENSION
  2. REVATIO [Concomitant]
  3. LETAIRIS [Suspect]
     Indication: PRODUCT USED FOR UNKNOWN INDICATION
     Dosage: 10 MG, UNK
     Route: 048
     Dates: start: 20120214

REACTIONS (2)
  - PULMONARY ARTERIAL HYPERTENSION [None]
  - BLOOD PRESSURE ABNORMAL [None]
